FAERS Safety Report 10085208 (Version 1)
Quarter: 2014Q2

REPORT INFORMATION
  Report Type: Spontaneous
  Country: GB (occurrence: GB)
  Receive Date: 20140417
  Receipt Date: 20140417
  Transmission Date: 20141212
  Serious: Yes (Hospitalization)
  Sender: FDA-Public Use
  Company Number: PHHY2014GB043068

PATIENT
  Age: 25 Year
  Sex: Female

DRUGS (1)
  1. DIGOXIN [Suspect]

REACTIONS (16)
  - Stillbirth [Unknown]
  - Pancreatic cyst [Unknown]
  - Apoptosis [Unknown]
  - Abdominal pain upper [Unknown]
  - Vomiting [Unknown]
  - Renal failure [Unknown]
  - Proteinuria [Unknown]
  - Oedema [Unknown]
  - Liver disorder [Unknown]
  - Blood creatinine increased [Recovered/Resolved]
  - Liver function test abnormal [Unknown]
  - Coagulopathy [Unknown]
  - Hypoalbuminaemia [Unknown]
  - Blood urea increased [Unknown]
  - Polyhydramnios [Unknown]
  - Maternal exposure timing unspecified [Unknown]
